FAERS Safety Report 24673597 (Version 1)
Quarter: 2024Q4

REPORT INFORMATION
  Report Type: Other
  Country: AU (occurrence: AU)
  Receive Date: 20241128
  Receipt Date: 20241128
  Transmission Date: 20250115
  Serious: Yes (Other)
  Sender: LUPIN
  Company Number: AU-LUPIN HEALTHCARE (UK) LIMITED-2024-11415

PATIENT
  Age: 55 Year
  Sex: Male

DRUGS (1)
  1. SERTRALINE [Suspect]
     Active Substance: SERTRALINE HYDROCHLORIDE
     Indication: Product used for unknown indication
     Dosage: UNK
     Route: 065

REACTIONS (6)
  - Alcohol interaction [Unknown]
  - Autoscopy [Unknown]
  - Dizziness [Unknown]
  - Impaired reasoning [Unknown]
  - Nausea [Unknown]
  - Weight decreased [Unknown]
